FAERS Safety Report 20939082 (Version 1)
Quarter: 2022Q2

REPORT INFORMATION
  Report Type: Spontaneous
  Country: US (occurrence: US)
  Receive Date: 20220609
  Receipt Date: 20220609
  Transmission Date: 20220721
  Serious: No
  Sender: FDA-Public Use
  Company Number: US-PFIZER INC-202200813528

PATIENT
  Age: 50 Year
  Sex: Female
  Weight: 102.06 kg

DRUGS (1)
  1. PAXLOVID [Suspect]
     Active Substance: NIRMATRELVIR\RITONAVIR
     Indication: COVID-19 treatment
     Dosage: 100MG RITONAVIR AND 150MG NIRMATRELVIR
     Route: 048
     Dates: start: 20220606

REACTIONS (6)
  - Dizziness [Recovering/Resolving]
  - Somnolence [Recovering/Resolving]
  - Feeling abnormal [Recovering/Resolving]
  - Presyncope [Recovering/Resolving]
  - Asthenia [Recovering/Resolving]
  - Blood pressure decreased [Recovering/Resolving]
